FAERS Safety Report 10234824 (Version 1)
Quarter: 2014Q1

REPORT INFORMATION
  Report Type: Spontaneous
  Country: US (occurrence: None)
  Receive Date: 20140306
  Receipt Date: 20140306
  Transmission Date: 20141002
  Serious: Yes (Hospitalization, Other)
  Sender: FDA-Public Use
  Company Number: 163-21880-13050744

PATIENT
  Age: 87 Year
  Sex: Female

DRUGS (12)
  1. REVLIMID (LENALIDOMIDE) (25 MILLIGRAM, CAPSULES) [Suspect]
     Indication: PLASMA CELL MYELOMA
     Dosage: 25 MG, 1 IN 1 D, PO, TEMPORARILY INTERRUPTED
     Route: 048
     Dates: start: 20130417
  2. ARANESP (DARBEPOETIN ALFA) (UNKNOWN) [Concomitant]
  3. BUTRANS (BUPRENORPHINE) (UNKNOWN) [Concomitant]
  4. CALCIUM 500 PLUS D (CALCIUM D3 ^STADA^) (UNKNOWN) [Concomitant]
  5. FLEXERIL (CYCLOBENZAPRINE HYDROCHLORIDE) (UNKNOWN) [Concomitant]
  6. IRON (UNKNOWN) [Concomitant]
  7. LOVASTATIN (UNKNOWN) [Concomitant]
  8. MIRALAX (MACROGOL) (UNKNOWN) [Concomitant]
  9. MULTIVITAMIN WITH IRON (OTHER VITAMIN PRODUCTS, COMBINATIONS) (UNKNOWN) [Concomitant]
  10. AMIODARONE HCL (AMIODARONE HYDROCHLORIDE) (UNKNOWN) [Concomitant]
  11. ASPIRIN (ACETYLSALICYLIC ACID) (UNKNOWN) [Concomitant]
  12. AUGMENTIN [Concomitant]

REACTIONS (6)
  - Cerebrovascular accident [None]
  - Cardiac failure congestive [None]
  - Asthenia [None]
  - Bone pain [None]
  - Anaemia [None]
  - Oedema peripheral [None]
